FAERS Safety Report 6965360-6 (Version None)
Quarter: 2010Q3

REPORT INFORMATION
  Report Type: 
  Country: None (occurrence: None)
  Receive Date: 20100903
  Receipt Date: 20100826
  Transmission Date: 20110219
  Serious: Yes (Hospitalization)
  Sender: FDA-Public Use
  Company Number: US-JNJFOC-20091000684

PATIENT
  Sex: Female
  Weight: 54.3 kg

DRUGS (6)
  1. INFLIXIMAB [Suspect]
     Indication: CROHN'S DISEASE
     Dosage: PRIOR TO ENROLLMENT INTO THE STUDY
     Route: 042
     Dates: start: 20060518, end: 20080602
  2. PREDNISONE [Concomitant]
  3. CIMZIA [Concomitant]
  4. ANTIBIOTICS UNSPECIFIED [Concomitant]
     Indication: INFLAMMATORY BOWEL DISEASE
  5. CELEXA [Concomitant]
  6. IMODIUM [Concomitant]

REACTIONS (1)
  - CROHN'S DISEASE [None]
